FAERS Safety Report 20449218 (Version 1)
Quarter: 2022Q1

REPORT INFORMATION
  Report Type: Spontaneous
  Country: US (occurrence: None)
  Receive Date: 20220208
  Receipt Date: 20220208
  Transmission Date: 20220423
  Serious: No
  Sender: FDA-Public Use
  Company Number: None

PATIENT
  Sex: Female

DRUGS (1)
  1. TOBRAMYCIN [Suspect]
     Active Substance: TOBRAMYCIN
     Dosage: OTHER QUANTITY : 300/5 MG/ML;?FREQUENCY : TWICE A DAY;?
     Dates: start: 202112

REACTIONS (6)
  - Rash [None]
  - Erythema [None]
  - Hypertension [None]
  - Anxiety [None]
  - Hypersensitivity [None]
  - Therapy cessation [None]
